FAERS Safety Report 7464445-8 (Version None)
Quarter: 2011Q2

REPORT INFORMATION
  Report Type: 
  Country: None (occurrence: None)
  Receive Date: 20110428
  Receipt Date: 20110413
  Transmission Date: 20111010
  Serious: Yes (Other)
  Sender: FDA-Public Use
  Company Number: 2011P1005508

PATIENT
  Age: 87 Year
  Sex: Male
  Weight: 83.4619 kg

DRUGS (3)
  1. CLOTRIMAZOLE [Suspect]
     Indication: EAR INFECTION FUNGAL
     Dosage: 4 GTT; BID-TID; ION
     Dates: start: 20110322, end: 20110329
  2. PLAVIX [Concomitant]
  3. ASPIRIN [Concomitant]

REACTIONS (6)
  - EAR DISCOMFORT [None]
  - HEARING IMPAIRED [None]
  - APPLICATION SITE SCAB [None]
  - HYPERACUSIS [None]
  - OTITIS MEDIA [None]
  - APPLICATION SITE PAIN [None]
